FAERS Safety Report 6447586-3 (Version None)
Quarter: 2009Q4

REPORT INFORMATION
  Report Type: 
  Country: None (occurrence: None)
  Receive Date: 20091119
  Receipt Date: 20090318
  Transmission Date: 20100525
  Serious: Yes (Hospitalization, Other)
  Sender: FDA-Public Use
  Company Number: US-AMGEN-QUU304822

PATIENT
  Sex: Female

DRUGS (6)
  1. ENBREL [Suspect]
     Indication: PSORIASIS
     Route: 058
     Dates: start: 20060412, end: 20081208
  2. ENBREL [Suspect]
     Indication: RHEUMATOID ARTHRITIS
  3. METHOTREXATE [Concomitant]
     Dates: start: 20050823, end: 20081014
  4. METHOTREXATE [Concomitant]
     Dates: start: 20081014
  5. COUMADIN [Concomitant]
  6. ASPIRIN [Concomitant]

REACTIONS (15)
  - ABNORMAL LOSS OF WEIGHT [None]
  - ARTHRALGIA [None]
  - ASTHENIA [None]
  - CELLULITIS [None]
  - DIZZINESS [None]
  - HEADACHE [None]
  - INTERNATIONAL NORMALISED RATIO INCREASED [None]
  - LEUKOPENIA [None]
  - MOUTH CYST [None]
  - MULTIPLE MYELOMA [None]
  - MYALGIA [None]
  - PANCYTOPENIA [None]
  - PSORIASIS [None]
  - RHEUMATOID ARTHRITIS [None]
  - THROMBOCYTOPENIA [None]
